FAERS Safety Report 5403628-5 (Version None)
Quarter: 2007Q3

REPORT INFORMATION
  Report Type: 
  Country: None (occurrence: None)
  Receive Date: 20070802
  Receipt Date: 20070726
  Transmission Date: 20080115
  Serious: Yes (Other)
  Sender: FDA-Public Use
  Company Number: PHBS2007BR12569

PATIENT
  Sex: Female
  Weight: 56 kg

DRUGS (9)
  1. ZOMETA [Suspect]
     Indication: METASTASES TO BONE
     Dosage: UNK, QMO
  2. XELODA [Concomitant]
     Indication: CHEMOTHERAPY
     Dosage: 5 TABS FOR 14 DAYS, THEN 1 WK BREAK
     Route: 048
  3. HIDANTAL [Concomitant]
     Indication: CONVULSION
     Dosage: 100 MG, TID
     Route: 048
  4. DECADRON [Concomitant]
     Indication: INFLAMMATION
     Dosage: 4 MG, QD
     Route: 048
  5. OMEPRAZOLE [Concomitant]
     Indication: PROPHYLAXIS AGAINST GASTROINTESTINAL ULCER
     Dosage: 40 MG, QD
     Route: 048
  6. AXERT [Concomitant]
     Indication: DEPRESSION
     Dosage: 1 DF, QD
     Route: 048
  7. CLONAZEPAM [Concomitant]
     Indication: DEPRESSION
     Dosage: 0.25 MG, QD
     Route: 048
  8. CARBOLITIUM [Concomitant]
     Indication: MOOD ALTERED
     Dosage: 1 DF, UNK
     Route: 048
  9. PURAN T4 [Concomitant]
     Indication: HYPOTHYROIDISM
     Dosage: 88 MG, QD
     Route: 048

REACTIONS (6)
  - DENTAL TREATMENT [None]
  - GINGIVITIS [None]
  - METASTASES TO CENTRAL NERVOUS SYSTEM [None]
  - OSTEONECROSIS [None]
  - TOOTH DISORDER [None]
  - TOOTH LOSS [None]
